FAERS Safety Report 6590271-8 (Version None)
Quarter: 2010Q1

REPORT INFORMATION
  Report Type: 
  Country: None (occurrence: None)
  Receive Date: 20100219
  Receipt Date: 20100210
  Transmission Date: 20100710
  Serious: Yes (Other)
  Sender: FDA-Public Use
  Company Number: PHHY2010JP07753

PATIENT
  Age: 37 Year
  Sex: Female

DRUGS (1)
  1. FEMARA [Suspect]
     Indication: OVULATION INDUCTION
     Dosage: 2.5 MG DAILY

REACTIONS (2)
  - ASCITES [None]
  - OVARIAN ENLARGEMENT [None]
